FAERS Safety Report 12500580 (Version 1)
Quarter: 2016Q2

REPORT INFORMATION
  Report Type: Spontaneous
  Country: US (occurrence: US)
  Receive Date: 20160627
  Receipt Date: 20160627
  Transmission Date: 20160815
  Serious: No
  Sender: FDA-Public Use
  Company Number: US-MYLANLABS-2016M1006193

PATIENT
  Age: 39 Year
  Sex: Male
  Weight: 81.63 kg

DRUGS (2)
  1. LATUDA [Concomitant]
     Active Substance: LURASIDONE HYDROCHLORIDE
     Dosage: 120 MG, QD
  2. CLOZAPINE TABLETS, USP [Suspect]
     Active Substance: CLOZAPINE
     Indication: SCHIZOPHRENIA
     Dosage: 600 MG, HS
     Route: 048
     Dates: start: 20111013

REACTIONS (5)
  - Upper respiratory tract infection [Recovered/Resolved]
  - Neutrophil count increased [Unknown]
  - C-reactive protein increased [Unknown]
  - Antineutrophil cytoplasmic antibody increased [Not Recovered/Not Resolved]
  - Pyrexia [Recovered/Resolved]

NARRATIVE: CASE EVENT DATE: 201601
